FAERS Safety Report 7711855-7 (Version None)
Quarter: 2011Q3

REPORT INFORMATION
  Report Type: 
  Country: None (occurrence: None)
  Receive Date: 20110822
  Receipt Date: 20110804
  Transmission Date: 20111222
  Serious: Yes (Other)
  Sender: FDA-Public Use
  Company Number: 2011MA011372

PATIENT
  Age: 64 Year
  Sex: Female

DRUGS (6)
  1. FLUTICASEONE [Concomitant]
  2. LISINOPRIL [Concomitant]
  3. MULTI-VITAMIN [Concomitant]
  4. ASPIRIN [Concomitant]
  5. SULFATRIM PEDIATRIC [Suspect]
     Indication: URINARY TRACT INFECTION
  6. HYDROCHLOROTHIAZIDE [Concomitant]

REACTIONS (8)
  - CONFUSIONAL STATE [None]
  - VOMITING [None]
  - PYREXIA [None]
  - LETHARGY [None]
  - BLOOD PRESSURE SYSTOLIC INCREASED [None]
  - MENINGITIS ASEPTIC [None]
  - NAUSEA [None]
  - URINARY TRACT INFECTION [None]
